FAERS Safety Report 19205204 (Version 1)
Quarter: 2021Q2

REPORT INFORMATION
  Report Type: Spontaneous
  Country: US (occurrence: US)
  Receive Date: 20210503
  Receipt Date: 20210503
  Transmission Date: 20210717
  Serious: No
  Sender: FDA-Public Use
  Company Number: US-FARMAPROD-202003-0342

PATIENT
  Sex: Female

DRUGS (3)
  1. BESIVANCE [Concomitant]
     Active Substance: BESIFLOXACIN
  2. OXERVATE [Suspect]
     Active Substance: CENEGERMIN-BKBJ
     Indication: NEUROTROPHIC KERATOPATHY
     Route: 047
     Dates: start: 20200224
  3. LOTEMAX [Concomitant]
     Active Substance: LOTEPREDNOL ETABONATE
     Dosage: DROPS SUSPENSION

REACTIONS (7)
  - Eyelid irritation [Unknown]
  - Faeces discoloured [Unknown]
  - Product dose omission issue [Unknown]
  - Photophobia [Unknown]
  - Product administration error [Unknown]
  - Eye pain [Not Recovered/Not Resolved]
  - Eye pain [Unknown]
